FAERS Safety Report 16363515 (Version 1)
Quarter: 2019Q2

REPORT INFORMATION
  Report Type: Spontaneous
  Country: NO (occurrence: NO)
  Receive Date: 20190528
  Receipt Date: 20190528
  Transmission Date: 20190711
  Serious: Yes (Life-Threatening)
  Sender: FDA-Public Use
  Company Number: NO-OTSUKA-2019_020905

PATIENT
  Age: 64 Year
  Sex: Female
  Weight: 91 kg

DRUGS (1)
  1. ABILIFY MAINTENA [Suspect]
     Active Substance: ARIPIPRAZOLE
     Indication: SCHIZOPHRENIA
     Dosage: UNK
     Route: 065
     Dates: start: 20190107, end: 20190414

REACTIONS (30)
  - Feeling abnormal [Recovering/Resolving]
  - Abdominal pain [Recovering/Resolving]
  - Injection site reaction [Recovering/Resolving]
  - Vision blurred [Recovering/Resolving]
  - Vomiting [Recovering/Resolving]
  - Diarrhoea [Recovering/Resolving]
  - Weight increased [Recovering/Resolving]
  - Visual impairment [Recovering/Resolving]
  - Neck pain [Recovering/Resolving]
  - Fatigue [Recovering/Resolving]
  - Myalgia [Recovering/Resolving]
  - Insomnia [Recovering/Resolving]
  - Dementia [Recovering/Resolving]
  - Chills [Recovering/Resolving]
  - Irritability [Recovering/Resolving]
  - Oedema peripheral [Recovering/Resolving]
  - Mental impairment [Recovering/Resolving]
  - Epilepsy [Recovering/Resolving]
  - Thirst [Recovering/Resolving]
  - Musculoskeletal stiffness [Recovering/Resolving]
  - Binge eating [Recovering/Resolving]
  - Chest pain [Recovering/Resolving]
  - Alopecia [Recovering/Resolving]
  - Oedema [Recovering/Resolving]
  - Arrhythmia [Recovering/Resolving]
  - Trismus [Recovering/Resolving]
  - Impulsive behaviour [Recovering/Resolving]
  - Clumsiness [Recovering/Resolving]
  - Mobility decreased [Recovering/Resolving]
  - Diplopia [Recovering/Resolving]

NARRATIVE: CASE EVENT DATE: 20190107
